FAERS Safety Report 7812757-8 (Version None)
Quarter: 2011Q4

REPORT INFORMATION
  Report Type: 
  Country: None (occurrence: None)
  Receive Date: 20111013
  Receipt Date: 20111006
  Transmission Date: 20120403
  Serious: Yes (Hospitalization, Other)
  Sender: FDA-Public Use
  Company Number: US-UCBSA-042895

PATIENT
  Age: 11 Year
  Sex: Male

DRUGS (17)
  1. KAPVAY [Suspect]
     Dates: start: 20110606, end: 20110101
  2. CONCERTA [Concomitant]
     Dates: end: 20090401
  3. MELATONIN [Concomitant]
     Dates: end: 20090401
  4. KEPPRA [Suspect]
     Indication: PETIT MAL EPILEPSY
     Route: 048
  5. SINGULAIR [Concomitant]
  6. ALBUTEROL [Concomitant]
  7. TRAZODONE HYDROCHLORIDE [Concomitant]
  8. MELATONIN [Concomitant]
  9. ZYRTEC [Concomitant]
  10. PROZAC [Concomitant]
  11. TRAZODONE HYDROCHLORIDE [Concomitant]
     Dates: end: 20090401
  12. ADVAIR DISKUS 100/50 [Concomitant]
  13. CLONIDINE HYDROCHLORIDE [Concomitant]
  14. PREVACID [Concomitant]
  15. KEPPRA [Suspect]
     Indication: AFFECTIVE DISORDER
     Route: 048
  16. KAPVAY [Suspect]
     Dosage: 0.1 MG QAM; 0.2 MG QHS
     Dates: start: 20110101, end: 20110830
  17. CONCERTA [Concomitant]

REACTIONS (5)
  - MOOD ALTERED [None]
  - PSYCHOMOTOR HYPERACTIVITY [None]
  - HALLUCINATION, VISUAL [None]
  - SEDATION [None]
  - IRREGULAR SLEEP PHASE [None]
